FAERS Safety Report 5395336-4 (Version None)
Quarter: 2007Q3

REPORT INFORMATION
  Report Type: 
  Country: None (occurrence: None)
  Receive Date: 20070724
  Receipt Date: 20070719
  Transmission Date: 20080115
  Serious: Yes (Death)
  Sender: FDA-Public Use
  Company Number: IT-BRISTOL-MYERS SQUIBB COMPANY-13852348

PATIENT
  Sex: Male

DRUGS (1)
  1. GLYBURIDE AND METFORMIN HCL [Suspect]
     Route: 048

REACTIONS (1)
  - METABOLIC ACIDOSIS [None]
